FAERS Safety Report 5502228-6 (Version None)
Quarter: 2007Q4

REPORT INFORMATION
  Report Type: 
  Country: None (occurrence: None)
  Receive Date: 20071026
  Receipt Date: 20071022
  Transmission Date: 20080405
  Serious: Yes (Other)
  Sender: FDA-Public Use
  Company Number: 2007333603

PATIENT
  Age: 40 Year
  Sex: Male

DRUGS (1)
  1. ROGAINE [Suspect]
     Indication: ALOPECIA
     Dosage: 1 ML IN MORNING AND 1 ML IN THE EVENING (2 IN 1 D), TOPICAL
     Route: 061

REACTIONS (1)
  - SYNCOPE VASOVAGAL [None]
